FAERS Safety Report 13389674 (Version 1)
Quarter: 2017Q1

REPORT INFORMATION
  Report Type: Spontaneous
  Country: US (occurrence: US)
  Receive Date: 20170330
  Receipt Date: 20170330
  Transmission Date: 20170429
  Serious: Yes (Hospitalization)
  Sender: FDA-Public Use
  Company Number: US-ASTRAZENECA-2017SE16806

PATIENT
  Age: 69 Year
  Sex: Female

DRUGS (3)
  1. NEXIUM 24HR [Suspect]
     Active Substance: ESOMEPRAZOLE MAGNESIUM
     Indication: BARRETT^S OESOPHAGUS
     Dosage: 4 DF, DAILY(TWO TABLETS IN MORNING AND TWO TABLETS IN EVENING)
     Route: 048
  2. NEXIUM 24HR [Suspect]
     Active Substance: ESOMEPRAZOLE MAGNESIUM
     Indication: BARRETT^S OESOPHAGUS
     Route: 048
  3. CARAFATE [Concomitant]
     Active Substance: SUCRALFATE
     Dates: start: 201410

REACTIONS (3)
  - Drug ineffective for unapproved indication [Unknown]
  - Barrett^s oesophagus [Not Recovered/Not Resolved]
  - Off label use [Unknown]
